FAERS Safety Report 24066621 (Version 1)
Quarter: 2024Q3

REPORT INFORMATION
  Report Type: Report from Study
  Country: CN (occurrence: CN)
  Receive Date: 20240709
  Receipt Date: 20240709
  Transmission Date: 20241017
  Serious: Yes (Disabling)
  Sender: ROCHE
  Company Number: CN-002147023-NVSC2024CN129810

PATIENT
  Age: 78 Year
  Sex: Male
  Weight: 86 kg

DRUGS (1)
  1. LUCENTIS [Suspect]
     Active Substance: RANIBIZUMAB
     Indication: Choroidal neovascularisation
     Route: 047
     Dates: start: 20240129, end: 20240129

REACTIONS (2)
  - Visual acuity reduced [Not Recovered/Not Resolved]
  - Blindness [Unknown]
